FAERS Safety Report 7884281 (Version 9)
Quarter: 2015Q1

REPORT INFORMATION
  Report Type: Spontaneous
  Country: US (occurrence: US)
  Receive Date: 20110404
  Receipt Date: 20150304
  Transmission Date: 20150721
  Serious: Yes (Hospitalization, Other)
  Sender: FDA-Public Use
  Company Number: US-ASTRAZENECA-2011SE17564

PATIENT
  Age: 70 Year
  Sex: Female
  Weight: 74.8 kg

DRUGS (30)
  1. NEXIUM [Suspect]
     Active Substance: ESOMEPRAZOLE MAGNESIUM
     Indication: THYROID DISORDER
     Route: 048
  2. NEXIUM [Suspect]
     Active Substance: ESOMEPRAZOLE MAGNESIUM
     Indication: GASTROINTESTINAL DISORDER
     Route: 048
  3. LAVOXAL [Suspect]
     Active Substance: LEVOTHYROXINE SODIUM
     Indication: ILL-DEFINED DISORDER
     Dosage: LAVOXAL
     Route: 065
  4. RANITIDINE [Concomitant]
     Active Substance: RANITIDINE\RANITIDINE HYDROCHLORIDE
  5. TRAMADOL [Concomitant]
     Active Substance: TRAMADOL
     Indication: BACK PAIN
  6. SYNTHETIC THYROID [Concomitant]
     Indication: BASEDOW^S DISEASE
     Dosage: 112 MCG DAILY
  7. NEXIUM [Suspect]
     Active Substance: ESOMEPRAZOLE MAGNESIUM
     Indication: THYROID DISORDER
     Route: 048
     Dates: start: 2002
  8. NEXIUM [Suspect]
     Active Substance: ESOMEPRAZOLE MAGNESIUM
     Indication: GASTROOESOPHAGEAL REFLUX DISEASE
     Route: 048
     Dates: start: 2002
  9. PRILOSEC [Suspect]
     Active Substance: OMEPRAZOLE MAGNESIUM
     Route: 048
  10. PRILOSEC OTC [Suspect]
     Active Substance: OMEPRAZOLE MAGNESIUM
     Indication: GASTROOESOPHAGEAL REFLUX DISEASE
     Route: 048
  11. TYLENOL [Concomitant]
     Active Substance: ACETAMINOPHEN
  12. NEXIUM [Suspect]
     Active Substance: ESOMEPRAZOLE MAGNESIUM
     Indication: GASTROINTESTINAL DISORDER
     Route: 048
  13. NEXIUM [Suspect]
     Active Substance: ESOMEPRAZOLE MAGNESIUM
     Indication: NAUSEA
     Route: 048
  14. NEXIUM [Suspect]
     Active Substance: ESOMEPRAZOLE MAGNESIUM
     Indication: THYROID DISORDER
     Route: 048
  15. GENERIC MEDICATION [Suspect]
     Active Substance: UNSPECIFIED INGREDIENT
     Route: 065
  16. LAVOXAL [Suspect]
     Active Substance: LEVOTHYROXINE SODIUM
     Indication: ILL-DEFINED DISORDER
     Dosage: LEVOTHYROXINE
     Route: 065
  17. TINOSANT [Concomitant]
     Indication: ILL-DEFINED DISORDER
  18. LOSARTAN [Concomitant]
     Active Substance: LOSARTAN
  19. NEXIUM [Suspect]
     Active Substance: ESOMEPRAZOLE MAGNESIUM
     Indication: GASTROOESOPHAGEAL REFLUX DISEASE
     Route: 048
  20. NEXIUM [Suspect]
     Active Substance: ESOMEPRAZOLE MAGNESIUM
     Indication: NAUSEA
     Route: 048
  21. LAVOXAL [Suspect]
     Active Substance: LEVOTHYROXINE SODIUM
     Indication: THYROID DISORDER
     Dosage: LAVOXAL
     Route: 065
  22. NEXIUM [Suspect]
     Active Substance: ESOMEPRAZOLE MAGNESIUM
     Indication: GASTROOESOPHAGEAL REFLUX DISEASE
     Route: 048
  23. NEXIUM [Suspect]
     Active Substance: ESOMEPRAZOLE MAGNESIUM
     Indication: NAUSEA
     Route: 048
     Dates: start: 2002
  24. TAMOXIFEN [Suspect]
     Active Substance: TAMOXIFEN
     Indication: BREAST CANCER
     Route: 048
     Dates: start: 2009
  25. LAVOXAL [Suspect]
     Active Substance: LEVOTHYROXINE SODIUM
     Indication: THYROID DISORDER
     Dosage: LEVOTHYROXINE
     Route: 065
  26. LAVOXAL [Suspect]
     Active Substance: LEVOTHYROXINE SODIUM
     Indication: ILL-DEFINED DISORDER
     Dosage: SYNTHYOID
     Route: 065
  27. LAVOXAL [Suspect]
     Active Substance: LEVOTHYROXINE SODIUM
     Indication: THYROID DISORDER
     Dosage: SYNTHYOID
     Route: 065
  28. ELMIRON [Concomitant]
     Active Substance: PENTOSAN POLYSULFATE SODIUM
  29. ALLERGY TABLETS [Concomitant]
     Indication: MULTIPLE ALLERGIES
     Dosage: AS REQUIRED
  30. NEXIUM [Suspect]
     Active Substance: ESOMEPRAZOLE MAGNESIUM
     Indication: GASTROINTESTINAL DISORDER
     Route: 048
     Dates: start: 2002

REACTIONS (19)
  - Cystitis interstitial [Unknown]
  - Intervertebral disc degeneration [Unknown]
  - Thyroid disorder [Unknown]
  - Breast cancer [Unknown]
  - Anaemia [Unknown]
  - Nausea [Unknown]
  - Gastrointestinal pain [Unknown]
  - Intentional product misuse [Unknown]
  - Abdominal discomfort [Unknown]
  - Malaise [Unknown]
  - Gastrooesophageal reflux disease [Unknown]
  - Oesophageal disorder [Unknown]
  - Hot flush [Unknown]
  - Diarrhoea [Unknown]
  - Abdominal pain upper [Unknown]
  - Drug ineffective [Unknown]
  - Drug dose omission [Unknown]
  - Blood thyroid stimulating hormone [Unknown]
  - Adverse event [Unknown]

NARRATIVE: CASE EVENT DATE: 2009
